FAERS Safety Report 15931854 (Version 1)
Quarter: 2019Q1

REPORT INFORMATION
  Report Type: Spontaneous
  Country: US (occurrence: US)
  Receive Date: 20190117
  Receipt Date: 20190117
  Transmission Date: 20190417
  Serious: Yes (Hospitalization)
  Sender: FDA-Public Use
  Company Number: None

PATIENT
  Age: 74 Year
  Sex: Male

DRUGS (9)
  1. OFEV [Concomitant]
     Active Substance: NINTEDANIB
  2. LEVOTHYROXINE. [Concomitant]
     Active Substance: LEVOTHYROXINE
  3. ATORVASTATIN [Concomitant]
     Active Substance: ATORVASTATIN
  4. ESBRIET [Suspect]
     Active Substance: PIRFENIDONE
     Indication: INTERSTITIAL LUNG DISEASE
     Route: 048
     Dates: start: 20170222
  5. ZOLPIDEM [Concomitant]
     Active Substance: ZOLPIDEM\ZOLPIDEM TARTRATE
  6. PREDNISONE. [Concomitant]
     Active Substance: PREDNISONE
  7. PREDNISONE. [Concomitant]
     Active Substance: PREDNISONE
  8. MIRTAZAPINE. [Suspect]
     Active Substance: MIRTAZAPINE
  9. ESCITALOPRAM [Concomitant]
     Active Substance: ESCITALOPRAM OXALATE

REACTIONS (1)
  - Viral infection [None]

NARRATIVE: CASE EVENT DATE: 20190101
